FAERS Safety Report 6214587-X (Version None)
Quarter: 2009Q2

REPORT INFORMATION
  Report Type: 
  Country: None (occurrence: None)
  Receive Date: 20090602
  Receipt Date: 20090521
  Transmission Date: 20091009
  Serious: Yes (Hospitalization)
  Sender: FDA-Public Use
  Company Number: 2009-02067

PATIENT
  Age: 54 Year
  Sex: Male

DRUGS (1)
  1. VELCADE [Suspect]
     Indication: MULTIPLE MYELOMA
     Dosage: 1.7 MG, INTRAVENOUS
     Route: 042
     Dates: start: 20090309, end: 20090323

REACTIONS (4)
  - ANOREXIA [None]
  - ASTHENIA [None]
  - GAIT DISTURBANCE [None]
  - WEIGHT DECREASED [None]
